FAERS Safety Report 8276584-2 (Version None)
Quarter: 2012Q2

REPORT INFORMATION
  Report Type: 
  Country: None (occurrence: None)
  Receive Date: 20120412
  Receipt Date: 20120404
  Transmission Date: 20120825
  Serious: Yes (Hospitalization, Other)
  Sender: FDA-Public Use
  Company Number: AU-BAYER-2012-021602

PATIENT
  Age: 39 Year
  Sex: Female

DRUGS (1)
  1. MIRENA [Suspect]
     Indication: CONTRACEPTION
     Dosage: 20 ?G/D, CONT
     Route: 015
     Dates: start: 20120210, end: 20120216

REACTIONS (11)
  - MOOD SWINGS [None]
  - DIZZINESS [None]
  - MIGRAINE [None]
  - VAGINAL HAEMORRHAGE [None]
  - POST PROCEDURAL DISCOMFORT [None]
  - NAUSEA [None]
  - CRYING [None]
  - FATIGUE [None]
  - SHOCK [None]
  - GRIEF REACTION [None]
  - DEPRESSION [None]
